FAERS Safety Report 7375248-7 (Version None)
Quarter: 2011Q1

REPORT INFORMATION
  Report Type: 
  Country: None (occurrence: None)
  Receive Date: 20110325
  Receipt Date: 20110316
  Transmission Date: 20110831
  Serious: Yes (Death, Other)
  Sender: FDA-Public Use
  Company Number: PT-ROCHE-767034

PATIENT

DRUGS (2)
  1. AVASTIN [Suspect]
     Route: 065
  2. IRINOTECAN HYDROCHLORIDE [Suspect]
     Route: 065

REACTIONS (8)
  - DIARRHOEA [None]
  - HAEMORRHAGE [None]
  - EMBOLISM VENOUS [None]
  - DEATH [None]
  - HYPERTENSION [None]
  - DISEASE PROGRESSION [None]
  - INFECTION [None]
  - PROTEINURIA [None]
